FAERS Safety Report 17268683 (Version 2)
Quarter: 2021Q1

REPORT INFORMATION
  Report Type: Spontaneous
  Country: US (occurrence: US)
  Receive Date: 20200114
  Receipt Date: 20210218
  Transmission Date: 20210419
  Serious: No
  Sender: FDA-Public Use
  Company Number: US-ASTRAZENECA-2019SF85190

PATIENT
  Sex: Female
  Weight: 97.5 kg

DRUGS (1)
  1. BYDUREON BCISE [Suspect]
     Active Substance: EXENATIDE
     Indication: TYPE 2 DIABETES MELLITUS
     Route: 058

REACTIONS (5)
  - Wrong technique in device usage process [Unknown]
  - Product dose omission issue [Unknown]
  - Intentional product misuse [Unknown]
  - Device issue [Unknown]
  - Injection site indentation [Unknown]
